FAERS Safety Report 9720396 (Version 2)
Quarter: 2013Q4

REPORT INFORMATION
  Report Type: Spontaneous
  Country: US (occurrence: US)
  Receive Date: 20131129
  Receipt Date: 20131209
  Transmission Date: 20140711
  Serious: Yes (Other)
  Sender: FDA-Public Use
  Company Number: US-RB-060423-13

PATIENT
  Age: 43 Year
  Sex: Female

DRUGS (1)
  1. MUCINEX DM MAXIMUM STRENGTH [Suspect]
     Indication: PRODUCT USED FOR UNKNOWN INDICATION
     Dosage: 1 TABLET AT 8:00PM ON 24-NOV-2013 AND 1 AT 3AM THE NEXT MORNING ON 25-NOV-2013. DRUG STOPPED ON 25/N
     Route: 048
     Dates: start: 20131124

REACTIONS (3)
  - Haematochezia [Recovered/Resolved]
  - Pain [Recovered/Resolved]
  - Inappropriate schedule of drug administration [Recovered/Resolved]
